FAERS Safety Report 19452423 (Version 1)
Quarter: 2021Q2

REPORT INFORMATION
  Report Type: Spontaneous
  Country: US (occurrence: US)
  Receive Date: 20210623
  Receipt Date: 20210623
  Transmission Date: 20210717
  Serious: No
  Sender: FDA-Public Use
  Company Number: None

PATIENT
  Age: 63 Year
  Sex: Female
  Weight: 99.9 kg

DRUGS (22)
  1. NYSTATIN. [Concomitant]
     Active Substance: NYSTATIN
  2. ONDANSETRON HCL [Concomitant]
     Active Substance: ONDANSETRON HYDROCHLORIDE
  3. ROPINIROLE. [Concomitant]
     Active Substance: ROPINIROLE
  4. SINGULAIR [Concomitant]
     Active Substance: MONTELUKAST SODIUM
  5. TOPAMAX [Concomitant]
     Active Substance: TOPIRAMATE
  6. VITAMIN D2 [Concomitant]
     Active Substance: ERGOCALCIFEROL
  7. CAPECITABINE. [Suspect]
     Active Substance: CAPECITABINE
     Indication: RECTAL CANCER
     Route: 048
     Dates: start: 20210325, end: 20210623
  8. CALCIUM + D [Concomitant]
     Active Substance: CALCIUM\VITAMIN D
  9. CITALOPRAM [Concomitant]
     Active Substance: CITALOPRAM HYDROBROMIDE
  10. LIDOCAINE?PRILOCAINE [Concomitant]
     Active Substance: LIDOCAINE\PRILOCAINE
  11. PREVALITE [Concomitant]
     Active Substance: CHOLESTYRAMINE
  12. NAPROXEN. [Concomitant]
     Active Substance: NAPROXEN
  13. PANTOPRAZOLE [Concomitant]
     Active Substance: PANTOPRAZOLE
  14. IMODIUM [Concomitant]
     Active Substance: LOPERAMIDE HYDROCHLORIDE
  15. GABAPENTIN. [Concomitant]
     Active Substance: GABAPENTIN
  16. LORATIDINE [Concomitant]
     Active Substance: LORATADINE
  17. AMLODIPINE [Concomitant]
     Active Substance: AMLODIPINE BESYLATE
  18. ASPIRIN 81 [Concomitant]
     Active Substance: ASPIRIN
  19. LOMOTIL [Concomitant]
     Active Substance: ATROPINE SULFATE\DIPHENOXYLATE HYDROCHLORIDE
  20. NITROGYLCERIN [Concomitant]
  21. VITAMIN B12 [Concomitant]
     Active Substance: CYANOCOBALAMIN
  22. POTASSIUM CHLORIDE. [Concomitant]
     Active Substance: POTASSIUM CHLORIDE

REACTIONS (1)
  - Oral candidiasis [None]

NARRATIVE: CASE EVENT DATE: 20210623
